FAERS Safety Report 13946024 (Version 1)
Quarter: 2017Q3

REPORT INFORMATION
  Report Type: Spontaneous
  Country: US (occurrence: US)
  Receive Date: 20170907
  Receipt Date: 20170907
  Transmission Date: 20171128
  Serious: Yes (Hospitalization)
  Sender: FDA-Public Use
  Company Number: US-BION-006619

PATIENT
  Age: 38 Year
  Sex: Female
  Weight: 68.04 kg

DRUGS (1)
  1. EQUATE IBUPROFEN [Suspect]
     Active Substance: IBUPROFEN
     Indication: ANALGESIC THERAPY
     Dosage: STRENGTH: 200 MG
     Route: 048

REACTIONS (6)
  - Poor quality drug administered [Not Recovered/Not Resolved]
  - Product odour abnormal [Unknown]
  - Nausea [None]
  - Abdominal discomfort [None]
  - Vomiting [Recovered/Resolved]
  - Diarrhoea [Recovered/Resolved]
